FAERS Safety Report 8850235 (Version 1)
Quarter: 2012Q4

REPORT INFORMATION
  Report Type: 
  Country: CA (occurrence: CA)
  Receive Date: 20121019
  Receipt Date: 20121019
  Transmission Date: 20130627
  Serious: Yes (Other)
  Sender: FDA-Public Use
  Company Number: CA-ELI_LILLY_AND_COMPANY-CA201210001931

PATIENT
  Age: 22 Year
  Sex: Male

DRUGS (5)
  1. PROZAC [Suspect]
     Dosage: 30 mg, UNK
  2. CLOZARIL [Concomitant]
     Dosage: 350 mg, qd
     Route: 048
  3. CLOZARIL [Concomitant]
     Dosage: 500 mg, UNK
     Route: 048
     Dates: start: 2002
  4. MULTIVITAMINS [Concomitant]
  5. THEOPHYLLINE [Concomitant]

REACTIONS (10)
  - Depressed level of consciousness [Unknown]
  - Respiratory distress [Unknown]
  - Lobar pneumonia [Unknown]
  - Hypotension [Unknown]
  - Myoclonus [Unknown]
  - Sedation [Unknown]
  - Cough [Unknown]
  - Retching [Unknown]
  - Drug interaction [Unknown]
  - Antipsychotic drug level increased [Unknown]
